FAERS Safety Report 8567299 (Version 30)
Quarter: 2016Q1

REPORT INFORMATION
  Report Type: Spontaneous
  Country: US (occurrence: US)
  Receive Date: 20120517
  Receipt Date: 20160223
  Transmission Date: 20160526
  Serious: Yes (Hospitalization, Other)
  Sender: FDA-Public Use
  Company Number: US-GLAXOSMITHKLINE-A0977772A

PATIENT

DRUGS (23)
  1. FLOLAN [Suspect]
     Active Substance: EPOPROSTENOL SODIUM
     Dosage: 20 NG/KG/MIN, CONCENTRATION 45,000 NG/ML, PUMP RATE 83 ML/DAY, VIAL STRENGTH 1.5 MG
     Route: 042
     Dates: start: 20100409
  2. FLOLAN [Suspect]
     Active Substance: EPOPROSTENOL SODIUM
     Dosage: UNK
     Dates: start: 20091217
  3. FLOLAN [Suspect]
     Active Substance: EPOPROSTENOL SODIUM
     Dosage: UNK
     Dates: start: 20091217
  4. FLOLAN [Suspect]
     Active Substance: EPOPROSTENOL SODIUM
     Dosage: UNK
     Dates: start: 20091217
  5. REVATIO [Concomitant]
     Active Substance: SILDENAFIL CITRATE
  6. FLOLAN [Suspect]
     Active Substance: EPOPROSTENOL SODIUM
     Dosage: UNK
     Dates: start: 20091217
  7. FLOLAN [Suspect]
     Active Substance: EPOPROSTENOL SODIUM
     Dosage: 22 NG/KG/MIN
     Route: 042
  8. OPSUMIT [Suspect]
     Active Substance: MACITENTAN
     Indication: PRODUCT USED FOR UNKNOWN INDICATION
     Route: 065
     Dates: end: 20140425
  9. FLOLAN [Suspect]
     Active Substance: EPOPROSTENOL SODIUM
     Indication: PULMONARY ARTERIAL HYPERTENSION
     Dosage: CONTINUOUS18 NG/KG/MINUTEVIAL STRENGTH 1.5 MG20 NG/KG/MINUTE CONTINUOUSCONCENTRATION OF 45,000 [...]
     Route: 042
     Dates: start: 20091217
  10. FLOLAN [Suspect]
     Active Substance: EPOPROSTENOL SODIUM
     Dosage: UNK
     Dates: start: 20091217
  11. FLOLAN [Suspect]
     Active Substance: EPOPROSTENOL SODIUM
     Dosage: UNK
     Dates: start: 20091217
  12. FLOLAN [Suspect]
     Active Substance: EPOPROSTENOL SODIUM
     Dosage: UNK
     Dates: start: 20091217
  13. FLOLAN [Suspect]
     Active Substance: EPOPROSTENOL SODIUM
     Dosage: 20 NG/KG/MIN CONTINUOUSLY
  14. FLOLAN [Suspect]
     Active Substance: EPOPROSTENOL SODIUM
     Dosage: 20 NG/KG/MIN (CONC OF 45,000 NG/ML, PUMP RATE 83 ML/DAY AND 1.5 MG VIAL STRENGTH
  15. CLINDAMYCIN [Suspect]
     Active Substance: CLINDAMYCIN\CLINDAMYCIN PHOSPHATE
     Indication: PRODUCT USED FOR UNKNOWN INDICATION
     Dosage: 300 MG, QID
  16. FLOLAN [Suspect]
     Active Substance: EPOPROSTENOL SODIUM
     Dosage: UNK
     Dates: start: 20091217
  17. FLOLAN [Suspect]
     Active Substance: EPOPROSTENOL SODIUM
     Dosage: UNK
     Dates: start: 20091217
  18. FLOLAN [Suspect]
     Active Substance: EPOPROSTENOL SODIUM
     Dosage: UNK
     Dates: start: 20091217
  19. FLOLAN [Suspect]
     Active Substance: EPOPROSTENOL SODIUM
     Dosage: 20 NG/KG/MIN CONTINUOUS, CONCENTRATION 45,000 NG/ML, PUMP RATE 83 ML/DAY, VIAL STRENGTH 1.5 MG
     Route: 042
     Dates: start: 20100409
  20. FLOLAN [Suspect]
     Active Substance: EPOPROSTENOL SODIUM
     Dosage: 20 NG/KG/MIN
     Dates: start: 20100408
  21. FLOLAN [Suspect]
     Active Substance: EPOPROSTENOL SODIUM
     Dosage: 20 NG/KG/MIN, CONCENTRATION 45,000 NG/ML, PUMP RATE 83 ML/DAY, VIAL STRENGTH 1.5 MG
     Dates: start: 20100408
  22. FLOLAN [Suspect]
     Active Substance: EPOPROSTENOL SODIUM
     Dosage: 20 NG/KG/MIN CONTINUOUSLY
  23. FLOLAN [Suspect]
     Active Substance: EPOPROSTENOL SODIUM
     Dosage: 20 NG/KG/MIN CONTINUOUS
     Route: 042
     Dates: start: 20100408

REACTIONS (36)
  - Thoracic cavity drainage [Not Recovered/Not Resolved]
  - Cough [Unknown]
  - Infusion site scab [Unknown]
  - Flushing [Recovered/Resolved]
  - Influenza [Recovered/Resolved]
  - Rhinorrhoea [Recovered/Resolved]
  - Dyspnoea [Not Recovered/Not Resolved]
  - Headache [Recovered/Resolved]
  - Application site irritation [Recovered/Resolved]
  - Catheter site pain [Unknown]
  - Erythema [Recovered/Resolved]
  - Fluid retention [Unknown]
  - Device related infection [Recovered/Resolved]
  - Application site discharge [Recovered/Resolved]
  - Laceration [Recovered/Resolved]
  - Infusion site haemorrhage [Recovered/Resolved]
  - Gastroenteritis viral [Unknown]
  - Fatigue [Unknown]
  - Central venous catheterisation [Recovered/Resolved]
  - Sepsis [Unknown]
  - Malaise [Unknown]
  - Infusion site swelling [Recovered/Resolved]
  - Pleural effusion [Unknown]
  - Infusion site erythema [Recovered/Resolved]
  - Restlessness [Unknown]
  - Infusion site pain [Recovered/Resolved]
  - Inadequate aseptic technique in use of product [Recovered/Resolved]
  - Oxygen saturation decreased [Unknown]
  - Chest pain [Not Recovered/Not Resolved]
  - Therapy change [Unknown]
  - Hospitalisation [Unknown]
  - Complication associated with device [Recovered/Resolved]
  - Generalised oedema [Not Recovered/Not Resolved]
  - Staphylococcal infection [Recovered/Resolved]
  - Catheterisation cardiac [Unknown]
  - Application site pain [Unknown]

NARRATIVE: CASE EVENT DATE: 20130326
